FAERS Safety Report 7917209-2 (Version None)
Quarter: 2011Q4

REPORT INFORMATION
  Report Type: 
  Country: None (occurrence: None)
  Receive Date: 20111116
  Receipt Date: 20111104
  Transmission Date: 20120403
  Serious: Yes (Other)
  Sender: FDA-Public Use
  Company Number: ES-NOVOPROD-338856

PATIENT

DRUGS (2)
  1. LIRAGLUTIDE FLEXPEN [Suspect]
     Indication: TYPE 2 DIABETES MELLITUS
  2. LIRAGLUTIDE FLEXPEN [Suspect]
     Indication: OBESITY

REACTIONS (1)
  - LIPASE INCREASED [None]
